FAERS Safety Report 4583592-1 (Version None)
Quarter: 2005Q1

REPORT INFORMATION
  Report Type: 
  Country: None (occurrence: None)
  Receive Date: 20050211
  Receipt Date: 20050103
  Transmission Date: 20050727
  Serious: Yes (Hospitalization)
  Sender: FDA-Public Use
  Company Number: 2005AP00998

PATIENT
  Age: 31 Year
  Sex: Female

DRUGS (1)
  1. SEROQUEL [Suspect]
     Indication: SCHIZOPHRENIA
     Dosage: 25 MG DAILY PO
     Route: 048
     Dates: start: 20040505, end: 20040811

REACTIONS (4)
  - CONFUSIONAL STATE [None]
  - DELUSION [None]
  - DISTURBANCE IN ATTENTION [None]
  - MUSCULOSKELETAL STIFFNESS [None]
